FAERS Safety Report 6309418-3 (Version None)
Quarter: 2009Q3

REPORT INFORMATION
  Report Type: 
  Country: None (occurrence: None)
  Receive Date: 20090814
  Receipt Date: 20090811
  Transmission Date: 20100115
  Serious: Yes (Hospitalization)
  Sender: FDA-Public Use
  Company Number: FR-ROCHE-649671

PATIENT
  Sex: Female

DRUGS (6)
  1. ROCEPHIN [Suspect]
     Indication: DRUG USE FOR UNKNOWN INDICATION
     Route: 042
     Dates: start: 20090301, end: 20090301
  2. IMUREL [Concomitant]
     Dates: start: 20090201, end: 20090301
  3. SOLUPRED [Concomitant]
     Route: 048
     Dates: start: 20090213
  4. CACIT D3 [Concomitant]
     Dosage: DRUG; CACIT VITAMINE D3
     Route: 048
     Dates: start: 20090213, end: 20090301
  5. ULTRA LEVURE [Concomitant]
     Route: 048
     Dates: start: 20090213, end: 20090301
  6. NEXIUM [Concomitant]
     Route: 048
     Dates: start: 20090213, end: 20090301

REACTIONS (1)
  - MYOPERICARDITIS [None]
